FAERS Safety Report 10470352 (Version 1)
Quarter: 2014Q3

REPORT INFORMATION
  Report Type: Spontaneous
  Country: CA (occurrence: CA)
  Receive Date: 20140923
  Receipt Date: 20140923
  Transmission Date: 20150326
  Serious: Yes (Death, Life-Threatening)
  Sender: FDA-Public Use
  Company Number: CA-ROXANE LABORATORIES, INC.-2014-RO-01439RO

PATIENT
  Age: 90 Year
  Sex: Female

DRUGS (2)
  1. HYDROMORPHONE [Suspect]
     Active Substance: HYDROMORPHONE
     Indication: MUSCULOSKELETAL CHEST PAIN
     Route: 065
  2. MORPHINE [Suspect]
     Active Substance: MORPHINE
     Indication: CHEST PAIN
     Route: 048

REACTIONS (3)
  - Accidental overdose [Fatal]
  - Respiratory arrest [Unknown]
  - Circulatory collapse [Unknown]
